FAERS Safety Report 10187008 (Version 1)
Quarter: 2014Q2

REPORT INFORMATION
  Report Type: Spontaneous
  Country: US (occurrence: US)
  Receive Date: 20140522
  Receipt Date: 20140522
  Transmission Date: 20141212
  Serious: No
  Sender: FDA-Public Use
  Company Number: US-BIOGENIDEC-2014BI007672

PATIENT
  Age: 51 Year
  Sex: Female

DRUGS (5)
  1. TECFIDERA [Suspect]
     Indication: MULTIPLE SCLEROSIS
     Route: 048
     Dates: start: 20140121
  2. ZYRTEC ALLERGY [Concomitant]
  3. TEGRETOL [Concomitant]
  4. SIMVASTATIN [Concomitant]
  5. BACLOFEN [Concomitant]

REACTIONS (3)
  - Night sweats [Unknown]
  - Flushing [Unknown]
  - Abdominal discomfort [Unknown]
